FAERS Safety Report 4403559-3 (Version None)
Quarter: 2004Q3

REPORT INFORMATION
  Report Type: 
  Country: None (occurrence: None)
  Receive Date: 20040721
  Receipt Date: 20040712
  Transmission Date: 20050211
  Serious: Yes (Hospitalization)
  Sender: FDA-Public Use
  Company Number: US-GLAXOSMITHKLINE-A0517853A

PATIENT
  Age: 55 Year
  Sex: Female

DRUGS (5)
  1. IMITREX [Suspect]
     Indication: MIGRAINE
     Route: 058
     Dates: start: 19930101
  2. ASPIRIN [Concomitant]
  3. MULTIVITAMIN [Concomitant]
  4. TETANUS VACCINE [Concomitant]
  5. PAIN MEDICATION [Concomitant]

REACTIONS (4)
  - ABDOMINAL PAIN UPPER [None]
  - CARCINOMA [None]
  - NEOPLASM [None]
  - VASCULAR NEOPLASM [None]
